FAERS Safety Report 16175500 (Version 6)
Quarter: 2019Q4

REPORT INFORMATION
  Report Type: Report from Study
  Country: None (occurrence: US)
  Receive Date: 20190409
  Receipt Date: 20191211
  Transmission Date: 20200122
  Serious: Yes (Hospitalization, Other)
  Sender: FDA-Public Use
  Company Number: US-ABBVIE-19K-163-2734734-00

PATIENT
  Sex: Female

DRUGS (3)
  1. HUMIRA [Suspect]
     Active Substance: ADALIMUMAB
     Route: 058
  2. HUMIRA [Suspect]
     Active Substance: ADALIMUMAB
     Route: 058
  3. HUMIRA [Suspect]
     Active Substance: ADALIMUMAB
     Indication: HIDRADENITIS
     Route: 058
     Dates: end: 2018

REACTIONS (35)
  - Gait disturbance [Unknown]
  - Hot flush [Unknown]
  - Discomfort [Unknown]
  - Spinal operation [Recovering/Resolving]
  - Weight increased [Unknown]
  - Balance disorder [Unknown]
  - Gastrooesophageal reflux disease [Unknown]
  - Hidradenitis [Not Recovered/Not Resolved]
  - Furuncle [Unknown]
  - Gastrointestinal disorder [Unknown]
  - Feeling cold [Unknown]
  - Arthralgia [Unknown]
  - Gait inability [Unknown]
  - Nervousness [Unknown]
  - Drug ineffective [Not Recovered/Not Resolved]
  - Abdominal mass [Recovered/Resolved]
  - Rotator cuff syndrome [Unknown]
  - Sinus disorder [Unknown]
  - Hypertension [Unknown]
  - Unevaluable event [Unknown]
  - Dyspnoea [Unknown]
  - Bacterial infection [Unknown]
  - Hidradenitis [Recovered/Resolved]
  - Nasopharyngitis [Unknown]
  - Fatigue [Unknown]
  - Cyst [Not Recovered/Not Resolved]
  - Respiratory disorder [Unknown]
  - Musculoskeletal stiffness [Unknown]
  - Fibromyalgia [Not Recovered/Not Resolved]
  - Diabetes mellitus [Not Recovered/Not Resolved]
  - Stress [Unknown]
  - Arthritis [Unknown]
  - Otorrhoea [Unknown]
  - Rash macular [Unknown]
  - Influenza like illness [Unknown]

NARRATIVE: CASE EVENT DATE: 2018
